FAERS Safety Report 6245652-9 (Version None)
Quarter: 2009Q2

REPORT INFORMATION
  Report Type: 
  Country: None (occurrence: None)
  Receive Date: 20090625
  Receipt Date: 20090622
  Transmission Date: 20091009
  Serious: Yes (Life-Threatening, Hospitalization, Other)
  Sender: FDA-Public Use
  Company Number: HQWYE768908AUG05

PATIENT
  Sex: Male

DRUGS (16)
  1. SIROLIMUS [Suspect]
     Indication: PROPHYLAXIS AGAINST TRANSPLANT REJECTION
     Route: 048
     Dates: start: 20041124, end: 20041126
  2. SIROLIMUS [Suspect]
     Route: 048
     Dates: start: 20041127, end: 20041130
  3. SIROLIMUS [Suspect]
     Route: 048
     Dates: start: 20041201, end: 20050616
  4. SIROLIMUS [Suspect]
     Route: 048
     Dates: start: 20050617
  5. MYCOPHENOLATE MOFETIL [Suspect]
     Indication: PROPHYLAXIS AGAINST TRANSPLANT REJECTION
     Route: 048
     Dates: start: 20041124, end: 20041130
  6. MYCOPHENOLATE MOFETIL [Suspect]
     Route: 048
     Dates: start: 20041204
  7. METOPROLOL SUCCINATE [Concomitant]
     Dosage: UNSPECIFIED
     Dates: start: 20041126
  8. OMEPRAZOLE [Concomitant]
     Dosage: UNSPECIFIED
     Dates: start: 20041124, end: 20051121
  9. METHYLPREDNISOLONE SODIUM SUCCINATE [Suspect]
     Indication: PROPHYLAXIS AGAINST TRANSPLANT REJECTION
     Route: 042
     Dates: start: 20041124, end: 20041126
  10. PREDNISONUM [Suspect]
     Indication: PROPHYLAXIS AGAINST TRANSPLANT REJECTION
     Route: 048
     Dates: start: 20041126, end: 20041221
  11. PREDNISONUM [Suspect]
     Route: 048
     Dates: start: 20041222
  12. CIPROFLOXACIN [Concomitant]
     Dosage: UNSPECIFIED
     Dates: start: 20041124, end: 20041128
  13. INSULIN HUMAN [Concomitant]
  14. DACLIZUMAB [Concomitant]
     Indication: PROPHYLAXIS AGAINST TRANSPLANT REJECTION
     Dosage: 125 MG
     Route: 042
     Dates: start: 20041124, end: 20041124
  15. DACLIZUMAB [Concomitant]
     Route: 042
     Dates: start: 20041209, end: 20050120
  16. AMLODIPINE BESYLATE [Concomitant]
     Dosage: UNSPECIFIED
     Dates: start: 20040908

REACTIONS (2)
  - PNEUMONIA [None]
  - TONGUE NEOPLASM MALIGNANT STAGE UNSPECIFIED [None]
